FAERS Safety Report 6103277-X (Version None)
Quarter: 2009Q1

REPORT INFORMATION
  Report Type: 
  Country: None (occurrence: None)
  Receive Date: 20090305
  Receipt Date: 20090224
  Transmission Date: 20090719
  Serious: Yes (Other)
  Sender: FDA-Public Use
  Company Number: FR-CELGENEUS-056-20785-09010015

PATIENT
  Sex: Female
  Weight: 50 kg

DRUGS (7)
  1. THALIDOMIDE [Suspect]
     Indication: DRUG USE FOR UNKNOWN INDICATION
     Route: 048
     Dates: start: 20081106
  2. THALIDOMIDE [Suspect]
     Route: 048
     Dates: end: 20081218
  3. ALKERAN [Concomitant]
     Indication: DRUG USE FOR UNKNOWN INDICATION
     Route: 048
     Dates: start: 20081106, end: 20081201
  4. LYTOS [Concomitant]
     Route: 048
     Dates: end: 20080701
  5. ARANESP [Concomitant]
     Indication: MULTIPLE MYELOMA
     Route: 058
     Dates: end: 20080701
  6. CORTANCYL [Concomitant]
     Indication: MULTIPLE MYELOMA
     Route: 048
     Dates: start: 20080701, end: 20081201
  7. GARDENAL [Concomitant]
     Indication: EPILEPSY
     Route: 048

REACTIONS (1)
  - EPILEPSY [None]
